FAERS Safety Report 5873371-7 (Version None)
Quarter: 2008Q3

REPORT INFORMATION
  Report Type: 
  Country: None (occurrence: None)
  Receive Date: 20080829
  Receipt Date: 20070816
  Transmission Date: 20090109
  Serious: Yes (Hospitalization)
  Sender: FDA-Public Use
  Company Number: 2007-00752FE

PATIENT
  Age: 35 Year
  Sex: Female

DRUGS (2)
  1. MENOPUR [Suspect]
     Indication: INFERTILITY
     Dates: start: 20010301, end: 20010101
  2. FOLLICLE STIMULATING HORMONE () (FOLLICLE-STIMULATING HORMONE, HUMAN) [Suspect]
     Indication: INFERTILITY
     Dates: start: 20010101, end: 20010101

REACTIONS (11)
  - ACUTE MYOCARDIAL INFARCTION [None]
  - ANTIPHOSPHOLIPID SYNDROME [None]
  - APHASIA [None]
  - ASCITES [None]
  - CARDIAC PSEUDOANEURYSM [None]
  - CEREBRAL ISCHAEMIA [None]
  - DILATATION VENTRICULAR [None]
  - ENDOCARDITIS [None]
  - HEMIPARESIS [None]
  - OVARIAN HYPERSTIMULATION SYNDROME [None]
  - PERICARDIAL EFFUSION [None]
